FAERS Safety Report 4598540-8 (Version None)
Quarter: 2005Q1

REPORT INFORMATION
  Report Type: 
  Country: None (occurrence: None)
  Receive Date: 20050225
  Receipt Date: 20050218
  Transmission Date: 20050727
  Serious: Yes (Hospitalization)
  Sender: FDA-Public Use
  Company Number: 2004-03982

PATIENT
  Age: 64 Year
  Sex: Male

DRUGS (1)
  1. IMMUCYST (BCG - IT (CONNAUGHT)), [Suspect]
     Indication: BLADDER CANCER
     Dosage: B. IN., BLADDER
     Route: 043

REACTIONS (1)
  - REITER'S SYNDROME [None]
